FAERS Safety Report 8850977 (Version 1)
Quarter: 2012Q4

REPORT INFORMATION
  Report Type: 
  Country: US (occurrence: US)
  Receive Date: 20121019
  Receipt Date: 20121019
  Transmission Date: 20130627
  Serious: Yes (Other)
  Sender: FDA-Public Use
  Company Number: PHEH2012US020406

PATIENT
  Sex: Female

DRUGS (9)
  1. LESCOL XL [Suspect]
     Indication: BLOOD CHOLESTEROL
     Dosage: 80 mg,
  2. GLUCOSAMINE [Concomitant]
     Indication: ARTHRALGIA
  3. ASPIRIN [Concomitant]
     Indication: CARDIAC DISORDER
  4. ESTER-C [Concomitant]
     Indication: SUPPLEMENTATION THERAPY
  5. CITRICAL [Concomitant]
     Indication: SUPPLEMENTATION THERAPY
  6. BIOTIN [Concomitant]
     Indication: SUPPLEMENTATION THERAPY
  7. CENTRUM SILVER [Concomitant]
     Indication: SUPPLEMENTATION THERAPY
  8. FISH OIL [Concomitant]
     Indication: SUPPLEMENTATION THERAPY
  9. PROBIOTICS [Concomitant]
     Indication: SUPPLEMENTATION THERAPY

REACTIONS (2)
  - Lung neoplasm malignant [Unknown]
  - Fall [Unknown]
